FAERS Safety Report 5002777-3 (Version None)
Quarter: 2006Q2

REPORT INFORMATION
  Report Type: 
  Country: None (occurrence: None)
  Receive Date: 20060516
  Receipt Date: 20060509
  Transmission Date: 20061013
  Serious: Yes (Hospitalization, Other)
  Sender: FDA-Public Use
  Company Number: DE-JNJFOC-20060500279

PATIENT
  Sex: Male
  Weight: 61.6 kg

DRUGS (1)
  1. CONCERTA [Suspect]
     Indication: ATTENTION DEFICIT/HYPERACTIVITY DISORDER
     Route: 048

REACTIONS (4)
  - CEREBRAL ARTERY OCCLUSION [None]
  - CEREBRAL ARTERY STENOSIS [None]
  - CEREBRAL INFARCTION [None]
  - PARESIS [None]
